FAERS Safety Report 22377770 (Version 1)
Quarter: 2023Q2

REPORT INFORMATION
  Report Type: Other
  Country: RU (occurrence: None)
  Receive Date: 20230529
  Receipt Date: 20230529
  Transmission Date: 20230721
  Serious: Yes (Other)
  Sender: FDA-Public Use
  Company Number: RU-ROCHE-3356176

PATIENT

DRUGS (1)
  1. BEVACIZUMAB [Suspect]
     Active Substance: BEVACIZUMAB
     Indication: Neoplasm malignant
     Dosage: 5 TO 15 MG/KG
     Route: 042

REACTIONS (14)
  - Haematotoxicity [Unknown]
  - Febrile neutropenia [Unknown]
  - Retinal artery stenosis [Unknown]
  - Vomiting [Unknown]
  - Diarrhoea [Unknown]
  - Haemorrhagic disorder [Unknown]
  - Hepatotoxicity [Unknown]
  - Nephropathy toxic [Unknown]
  - Thrombocytopenia [Unknown]
  - Eyelid ptosis [Recovered/Resolved]
  - Nystagmus [Unknown]
  - Conjunctival oedema [Unknown]
  - Conjunctivitis bacterial [Unknown]
  - Anisocoria [Recovered/Resolved]
